FAERS Safety Report 7466197-4 (Version None)
Quarter: 2011Q2

REPORT INFORMATION
  Report Type: 
  Country: None (occurrence: None)
  Receive Date: 20110505
  Receipt Date: 20110505
  Transmission Date: 20111010
  Serious: No
  Sender: FDA-Public Use
  Company Number: None

PATIENT
  Sex: Female

DRUGS (1)
  1. ENBREL [Suspect]
     Indication: PSORIATIC ARTHROPATHY
     Dosage: 80MG QW SQ
     Route: 058
     Dates: start: 20110405

REACTIONS (2)
  - ERYTHEMA [None]
  - SKIN BURNING SENSATION [None]
